APPROVED DRUG PRODUCT: HI-COR
Active Ingredient: HYDROCORTISONE
Strength: 2.5%
Dosage Form/Route: CREAM;TOPICAL
Application: A080483 | Product #001
Applicant: C AND M PHARMACAL INC
Approved: Approved Prior to Jan 1, 1982 | RLD: No | RS: No | Type: DISCN